FAERS Safety Report 13429274 (Version 1)
Quarter: 2017Q2

REPORT INFORMATION
  Report Type: Spontaneous
  Country: US (occurrence: US)
  Receive Date: 20170411
  Receipt Date: 20170411
  Transmission Date: 20170830
  Serious: No
  Sender: FDA-Public Use
  Company Number: US-PFIZER INC-2017148672

PATIENT
  Age: 59 Year
  Sex: Female
  Weight: 56.24 kg

DRUGS (11)
  1. FOLIC ACID. [Concomitant]
     Active Substance: FOLIC ACID
     Dosage: 1 MG TABLET, DAILY (QD)
  2. METHOTREXATE SODIUM. [Suspect]
     Active Substance: METHOTREXATE SODIUM
     Dosage: 15 MG, WEEKLY
  3. MEDROL [Concomitant]
     Active Substance: METHYLPREDNISOLONE
     Dosage: 4 MG, UNK (TAKE AS DIRECTED ON PACKAGE)
  4. SYNTHROID [Concomitant]
     Active Substance: LEVOTHYROXINE SODIUM
     Dosage: 125 UG, UNK
  5. CITRACAL PLUS D [Concomitant]
     Dosage: 600 MG, TWO TIMES A DAY (BID)
  6. METHOTREXATE SODIUM. [Suspect]
     Active Substance: METHOTREXATE SODIUM
     Indication: RHEUMATOID ARTHRITIS
     Dosage: 7.5 MG (2.5 MG, 3 TABLETS), WEEKLY
     Route: 048
  7. ZORVOLEX [Concomitant]
     Active Substance: DICLOFENAC
     Dosage: 35 MG, THREE TIMES A DAY (TID)
  8. ENBREL [Concomitant]
     Active Substance: ETANERCEPT
     Dosage: 50 MG/ML, EVERY WEEK
     Route: 058
     Dates: start: 200502, end: 201608
  9. PREDNISONE. [Concomitant]
     Active Substance: PREDNISONE
     Dosage: UNK, AS NEEDED (PRN)
  10. PREDNISONE. [Concomitant]
     Active Substance: PREDNISONE
     Indication: RHEUMATOID ARTHRITIS
     Dosage: 1 TABLET (5 MG), DAILY (QD)
     Route: 048
     Dates: start: 201608
  11. METHOTREXATE SODIUM. [Suspect]
     Active Substance: METHOTREXATE SODIUM
     Dosage: UNK
     Dates: start: 201101

REACTIONS (1)
  - Drug ineffective [Unknown]
